FAERS Safety Report 19995621 (Version 1)
Quarter: 2021Q4

REPORT INFORMATION
  Report Type: Spontaneous
  Country: US (occurrence: US)
  Receive Date: 20211026
  Receipt Date: 20211026
  Transmission Date: 20220303
  Serious: Yes (Other)
  Sender: FDA-Public Use
  Company Number: None

PATIENT
  Age: 86 Year
  Sex: Female
  Weight: 56.25 kg

DRUGS (8)
  1. BYSTOLIC [Suspect]
     Active Substance: NEBIVOLOL HYDROCHLORIDE
     Indication: Rheumatic fever
  2. PREMARIN [Concomitant]
     Active Substance: ESTROGENS, CONJUGATED
  3. ALDACTONE [Concomitant]
     Active Substance: SPIRONOLACTONE
  4. ALPRAZOLAM [Concomitant]
     Active Substance: ALPRAZOLAM
  5. DIGOXIN [Concomitant]
     Active Substance: DIGOXIN
  6. JANTOVEN [Concomitant]
     Active Substance: WARFARIN SODIUM
  7. LASIX [Concomitant]
     Active Substance: FUROSEMIDE
  8. POTASSIUM [Concomitant]
     Active Substance: POTASSIUM

REACTIONS (4)
  - Peripheral swelling [None]
  - Joint swelling [None]
  - Rash [None]
  - Dyspnoea [None]
